FAERS Safety Report 8362574-8 (Version None)
Quarter: 2012Q2

REPORT INFORMATION
  Report Type: 
  Country: None (occurrence: None)
  Receive Date: 20120516
  Receipt Date: 20120507
  Transmission Date: 20120825
  Serious: Yes (Other)
  Sender: FDA-Public Use
  Company Number: US-SANOFI-AVENTIS-2012SA020966

PATIENT
  Age: 49 Year
  Sex: Female
  Weight: 132 kg

DRUGS (3)
  1. LANTUS [Suspect]
     Indication: TYPE 2 DIABETES MELLITUS
     Dosage: DOSE:30 UNIT(S)
     Route: 058
     Dates: start: 20110301
  2. ALL OTHER THERAPEUTIC PRODUCTS [Concomitant]
  3. SOLOSTAR [Suspect]
     Indication: TYPE 2 DIABETES MELLITUS
     Dates: start: 20110101

REACTIONS (5)
  - VITAMIN B12 DEFICIENCY [None]
  - ANAEMIA [None]
  - IRON DEFICIENCY [None]
  - VITAMIN D DEFICIENCY [None]
  - INJECTION SITE PAIN [None]
